FAERS Safety Report 7163594-1 (Version None)
Quarter: 2010Q4

REPORT INFORMATION
  Report Type: 
  Country: None (occurrence: None)
  Receive Date: 20101215
  Receipt Date: 20100513
  Transmission Date: 20110411
  Serious: Yes (Other)
  Sender: FDA-Public Use
  Company Number: FI-PFIZER INC-2010058169

PATIENT
  Age: 67 Year
  Sex: Female

DRUGS (7)
  1. LYRICA [Suspect]
     Indication: SCIATICA
     Dosage: 75 MG, 2X/DAY
     Dates: start: 20100131, end: 20100301
  2. LYRICA [Suspect]
     Indication: MUSCLE SPASMS
  3. EMCONCOR [Concomitant]
     Indication: HYPERTENSION
     Dosage: 5 MG DAILY
  4. ATACAND [Concomitant]
     Indication: HYPERTENSION
     Dosage: 16 MG DAILY
  5. NATRILIX [Concomitant]
     Indication: HYPERTENSION
     Dosage: 2.5 MG DAILY
  6. THYROXIN [Concomitant]
     Indication: HYPOTHYROIDISM
     Dosage: 0.125 MG, 1X/DAY IN THE MORNINGS
  7. SIMVASTATIN [Concomitant]
     Indication: BLOOD CHOLESTEROL
     Dosage: 10 MG, 1X/DAY IN THE EVENINGS

REACTIONS (3)
  - ATRIAL FIBRILLATION [None]
  - CARDIAC FAILURE [None]
  - MEDICATION ERROR [None]
